FAERS Safety Report 9783822 (Version 1)
Quarter: 2013Q4

REPORT INFORMATION
  Report Type: Spontaneous
  Country: US (occurrence: US)
  Receive Date: 20131226
  Receipt Date: 20131226
  Transmission Date: 20140711
  Serious: Yes (Other)
  Sender: FDA-Public Use
  Company Number: US-PURDUE-USA-2013-0109793

PATIENT
  Sex: Female

DRUGS (2)
  1. OXYCODONE HYDROCHLORIDE (SIMILAR TO NDA 22-272) [Suspect]
     Indication: PRODUCT USED FOR UNKNOWN INDICATION
     Dosage: 15 MG, UNK
     Dates: start: 2010, end: 2012
  2. OXYCODONE HYDROCHLORIDE (SIMILAR TO NDA 22-272) [Suspect]
     Dosage: 30 MG, UNK
     Dates: start: 2010, end: 2012

REACTIONS (7)
  - Drug dependence [Recovered/Resolved]
  - Visual acuity reduced [Unknown]
  - Drug withdrawal syndrome [Unknown]
  - Tooth loss [Unknown]
  - Headache [Unknown]
  - Nausea [Unknown]
  - Hypoaesthesia [Unknown]
